FAERS Safety Report 5388490-1 (Version None)
Quarter: 2007Q3

REPORT INFORMATION
  Report Type: 
  Country: None (occurrence: None)
  Receive Date: 20070716
  Receipt Date: 20070705
  Transmission Date: 20080115
  Serious: Yes (Hospitalization)
  Sender: FDA-Public Use
  Company Number: GB-PFIZER INC-2006102123

PATIENT
  Sex: Female

DRUGS (2)
  1. CABERGOLINE [Suspect]
     Dosage: TEXT:UNKNOWN-FREQ:UNKNOWN
     Route: 065
  2. CARBIDOPA AND LEVODOPA [Suspect]
     Indication: PARKINSON'S DISEASE
     Dosage: TEXT:UNKNOWN-FREQ:UNKNOWN
     Route: 048

REACTIONS (1)
  - PARKINSON'S DISEASE [None]
